FAERS Safety Report 5604326-5 (Version None)
Quarter: 2008Q1

REPORT INFORMATION
  Report Type: 
  Country: None (occurrence: None)
  Receive Date: 20080128
  Receipt Date: 20080123
  Transmission Date: 20080703
  Serious: Yes (Other)
  Sender: FDA-Public Use
  Company Number: B0500589A

PATIENT
  Age: 10 Year
  Sex: Male
  Weight: 58 kg

DRUGS (2)
  1. RELENZA [Suspect]
     Indication: INFLUENZA
     Route: 055
     Dates: start: 20071212, end: 20071213
  2. HOKUNALIN [Concomitant]
     Route: 062

REACTIONS (1)
  - ABNORMAL BEHAVIOUR [None]
